FAERS Safety Report 15915925 (Version 1)
Quarter: 2019Q1

REPORT INFORMATION
  Report Type: Spontaneous
  Country: US (occurrence: US)
  Receive Date: 20190113
  Receipt Date: 20190113
  Transmission Date: 20190417
  Serious: Yes (Death)
  Sender: FDA-Public Use
  Company Number: None

PATIENT
  Age: 5 Year
  Sex: Female

DRUGS (2)
  1. AFINITOR [Suspect]
     Active Substance: EVEROLIMUS
     Indication: BRAIN CANCER METASTATIC
     Route: 048
     Dates: start: 20181026
  2. SPRYCEL [Suspect]
     Active Substance: DASATINIB
     Indication: BRAIN CANCER METASTATIC
     Route: 048
     Dates: start: 20180912

REACTIONS (1)
  - Death [None]
